FAERS Safety Report 10997521 (Version 1)
Quarter: 2015Q2

REPORT INFORMATION
  Report Type: Spontaneous
  Country: BR (occurrence: BR)
  Receive Date: 20150408
  Receipt Date: 20150408
  Transmission Date: 20150821
  Serious: Yes (Other)
  Sender: FDA-Public Use
  Company Number: BR-PFIZER INC-2015082138

PATIENT
  Age: 80 Year
  Sex: Female

DRUGS (7)
  1. CONCOR [Concomitant]
     Active Substance: BISOPROLOL FUMARATE
     Dosage: 2.5MG, ONCE A DAY
     Dates: start: 2014
  2. PURAN [Concomitant]
     Active Substance: LEVOTHYROXINE SODIUM
     Indication: HYPOTHYROIDISM
  3. ARADOIS [Concomitant]
     Active Substance: LOSARTAN POTASSIUM
     Indication: BLOOD PRESSURE ABNORMAL
     Dosage: ONE UNIT DAILY
     Dates: start: 201503
  4. FLORINEFE [Concomitant]
     Dosage: 0.1 MG, ALTERNATE DAY
     Dates: start: 201503
  5. XALATAN [Suspect]
     Active Substance: LATANOPROST
     Indication: INTRAOCULAR PRESSURE INCREASED
     Dosage: ONE DROP EACH EYE (TOTAL OF 3 ?G), 1X/DAY
     Route: 047
     Dates: start: 201412
  6. RITMONORM [Concomitant]
     Active Substance: PROPAFENONE HYDROCHLORIDE
     Dosage: 0.5 TABLET (UNSPECIFIED DOSE), 2X/DAY (IN THE MORNING AND AT NIGHT)
  7. XALACOM [Suspect]
     Active Substance: LATANOPROST\TIMOLOL MALEATE
     Indication: INTRAOCULAR PRESSURE INCREASED
     Dosage: UNK

REACTIONS (6)
  - Drug dispensing error [Unknown]
  - Visual field defect [Not Recovered/Not Resolved]
  - Vision blurred [Unknown]
  - Dry eye [Unknown]
  - Cataract [Unknown]
  - Product name confusion [Unknown]

NARRATIVE: CASE EVENT DATE: 20150303
